FAERS Safety Report 10195555 (Version 2)
Quarter: 2014Q2

REPORT INFORMATION
  Report Type: Spontaneous
  Country: IN (occurrence: IN)
  Receive Date: 20140527
  Receipt Date: 20140529
  Transmission Date: 20141212
  Serious: Yes (Life-Threatening, Hospitalization)
  Sender: FDA-Public Use
  Company Number: IN-009507513-1405IND012568

PATIENT
  Sex: Male

DRUGS (1)
  1. JANUMET [Suspect]
     Indication: DIABETES MELLITUS
     Dosage: TWO TIMES DAILY
     Route: 048

REACTIONS (2)
  - Dizziness [Unknown]
  - Hypoglycaemia [Not Recovered/Not Resolved]
